FAERS Safety Report 24916683 (Version 2)
Quarter: 2025Q1

REPORT INFORMATION
  Report Type: Spontaneous
  Country: JP (occurrence: JP)
  Receive Date: 20250203
  Receipt Date: 20250220
  Transmission Date: 20250409
  Serious: Yes (Death, Hospitalization, Other)
  Sender: ASTELLAS
  Company Number: JP-ASTELLAS-2024JP004976

PATIENT
  Age: 65 Year
  Sex: Male
  Weight: 76 kg

DRUGS (17)
  1. VYLOY [Suspect]
     Active Substance: ZOLBETUXIMAB-CLZB
     Indication: Metastatic gastric cancer
     Dosage: 800 MG/M2 (1500 MG)
     Route: 042
     Dates: start: 20240711, end: 20240711
  2. VYLOY [Suspect]
     Active Substance: ZOLBETUXIMAB-CLZB
     Route: 042
     Dates: start: 20240801, end: 20240801
  3. Oxycodone extended release tablets 5 mg [Concomitant]
     Indication: Gastric cancer
     Route: 048
     Dates: start: 20240610
  4. Oxinorm powder 2.5 mg [Concomitant]
     Indication: Gastric cancer
     Route: 048
     Dates: start: 20240610
  5. Oxinorm powder 2.5 mg [Concomitant]
     Indication: Abdominal pain lower
     Route: 048
     Dates: start: 20240803
  6. Olanzapine tablet 5 mg [Concomitant]
     Indication: Gastric cancer
     Route: 048
     Dates: start: 20240710
  7. PRIMPERAN [Concomitant]
     Active Substance: METOCLOPRAMIDE HYDROCHLORIDE
     Indication: Nausea
     Route: 065
     Dates: start: 20240711
  8. Arokaris I.V. infusion 235 mg [Concomitant]
     Indication: Gastric cancer
     Route: 065
     Dates: start: 20240711
  9. Palonosetron I.V. injection 0.75 mg [Concomitant]
     Indication: Gastric cancer
     Route: 065
     Dates: start: 20240711
  10. Dexart injection 6.6 mg [Concomitant]
     Indication: Gastric cancer
     Route: 065
     Dates: start: 20240711
  11. Polaramine injection 5 mg [Concomitant]
     Indication: Gastric cancer
     Route: 065
     Dates: start: 20240711
  12. Oxaliplatin I.V. infusion [Concomitant]
     Indication: Gastric cancer
     Route: 065
     Dates: start: 20240711
  13. ISOTONIC SODIUM CHLORIDE SOLUTION [Concomitant]
     Active Substance: SODIUM CHLORIDE
     Indication: Product used for unknown indication
     Route: 042
     Dates: start: 20240711
  14. Capecitabine tablet 300 mg [Concomitant]
     Indication: Gastric cancer
     Route: 048
     Dates: start: 20240712
  15. HYDROXYZINE HYDROCHLORIDE [Concomitant]
     Active Substance: HYDROXYZINE HYDROCHLORIDE
     Indication: Nausea
     Route: 065
     Dates: start: 20240801
  16. Olmesartan Tablets 40 mg [Concomitant]
     Indication: Hypertension
     Route: 048
  17. Amlodipine Tablets 2.5 mg [Concomitant]
     Indication: Hypertension
     Route: 048

REACTIONS (11)
  - Intestinal ischaemia [Fatal]
  - Dehydration [Recovered/Resolved]
  - Renal impairment [Unknown]
  - Nausea [Recovered/Resolved]
  - Hypoaesthesia [Unknown]
  - Vascular pain [Unknown]
  - Hiccups [Unknown]
  - Nausea [Recovered/Resolved]
  - Abdominal pain lower [Unknown]
  - Diarrhoea [Unknown]
  - Constipation [Unknown]

NARRATIVE: CASE EVENT DATE: 20240711
